FAERS Safety Report 8168010-9 (Version None)
Quarter: 2012Q1

REPORT INFORMATION
  Report Type: 
  Country: None (occurrence: None)
  Receive Date: 20120103
  Receipt Date: 20111108
  Transmission Date: 20120608
  Serious: No
  Sender: FDA-Public Use
  Company Number: AE-2011-003165

PATIENT
  Age: 53 Year
  Sex: Male
  Weight: 90.2658 kg

DRUGS (12)
  1. PEGASYS [Concomitant]
  2. RIBAVIRIN [Concomitant]
  3. LISINOPRIL [Concomitant]
  4. INCIVEK [Suspect]
     Dosage: 2250 MG (750 MG,1 IN 8 HR)
     Dates: start: 20110922
  5. LEVOTHYROXINE SODIUM [Concomitant]
  6. PANTOPRAZOLE [Concomitant]
  7. PLAVIX [Concomitant]
  8. METOPROLOL TARTRATE [Concomitant]
  9. ASA (ACETYLSALCYLIC ACID) [Concomitant]
  10. METFORMIN HCL [Concomitant]
  11. RANITIDINE HYDROCHLORIDE [Concomitant]
  12. LORATADINE [Concomitant]

REACTIONS (1)
  - RASH GENERALISED [None]
